FAERS Safety Report 18742711 (Version 4)
Quarter: 2021Q2

REPORT INFORMATION
  Report Type: Spontaneous
  Country: AU (occurrence: AU)
  Receive Date: 20210114
  Receipt Date: 20210419
  Transmission Date: 20210717
  Serious: Yes (Hospitalization, Other)
  Sender: FDA-Public Use
  Company Number: AU-GILEAD-2021-0512560

PATIENT
  Age: 50 Year
  Sex: Female

DRUGS (30)
  1. FLOLAN [Suspect]
     Active Substance: EPOPROSTENOL SODIUM
     Indication: PULMONARY ARTERIAL HYPERTENSION
     Dosage: 8 DF, CO, 8 NG/KG/MIN
     Route: 042
  2. AMOXICILLIN. [Concomitant]
     Active Substance: AMOXICILLIN
     Indication: PRODUCT USED FOR UNKNOWN INDICATION
     Dosage: UNK
  3. PREGABALIN CAPSULE [Concomitant]
     Active Substance: PREGABALIN
     Indication: PRODUCT USED FOR UNKNOWN INDICATION
     Dosage: UNK
  4. TARGIN [Concomitant]
     Active Substance: NALOXONE HYDROCHLORIDE\OXYCODONE HYDROCHLORIDE
     Indication: PRODUCT USED FOR UNKNOWN INDICATION
     Dosage: UNK
  5. AMBRISENTAN [Suspect]
     Active Substance: AMBRISENTAN
     Indication: SCLERODERMA
  6. FOLIC ACID TABLET [Concomitant]
     Active Substance: FOLIC ACID
     Dosage: UNK
  7. MYCOPHENOLATE MOFETIL TABLETS [Concomitant]
     Active Substance: MYCOPHENOLATE MOFETIL
     Indication: PRODUCT USED FOR UNKNOWN INDICATION
     Dosage: UNK
  8. NIZATIDINE TABLET [Concomitant]
     Indication: PRODUCT USED FOR UNKNOWN INDICATION
     Dosage: UNK
  9. TEMAZEPAM TABLETS [Concomitant]
     Dosage: UNK
  10. FLOLAN [Suspect]
     Active Substance: EPOPROSTENOL SODIUM
     Dosage: UNK
     Route: 065
  11. CLAVULANIC ACID [Concomitant]
     Active Substance: CLAVULANIC ACID
     Indication: PRODUCT USED FOR UNKNOWN INDICATION
     Dosage: UNK
  12. NIZATIDINE TABLET [Concomitant]
     Dosage: UNK
  13. TEMAZEPAM TABLETS [Concomitant]
     Indication: PRODUCT USED FOR UNKNOWN INDICATION
     Dosage: UNK
  14. AMBRISENTAN [Suspect]
     Active Substance: AMBRISENTAN
     Indication: PULMONARY ARTERIAL HYPERTENSION
     Dosage: 10 MG, QD
     Route: 065
  15. TADALAFIL. [Suspect]
     Active Substance: TADALAFIL
     Indication: PULMONARY ARTERIAL HYPERTENSION
     Dosage: 20 MG, QD
     Route: 065
  16. AMITRIPTYLINE [Concomitant]
     Active Substance: AMITRIPTYLINE
     Indication: PRODUCT USED FOR UNKNOWN INDICATION
     Dosage: UNK
  17. ESOMEPRAZOLE TABLET [Concomitant]
     Active Substance: ESOMEPRAZOLE
     Indication: PRODUCT USED FOR UNKNOWN INDICATION
     Dosage: UNK
  18. ESOMEPRAZOLE TABLET [Concomitant]
     Active Substance: ESOMEPRAZOLE
     Dosage: UNK
  19. MELATONIN [Concomitant]
     Active Substance: MELATONIN
     Indication: PRODUCT USED FOR UNKNOWN INDICATION
     Dosage: UNK
  20. MYCOPHENOLATE MOFETIL TABLETS [Concomitant]
     Active Substance: MYCOPHENOLATE MOFETIL
     Dosage: UNK
  21. PREGABALIN CAPSULE [Concomitant]
     Active Substance: PREGABALIN
     Dosage: UNK
  22. ENOXAPARIN INJECTION [Concomitant]
     Active Substance: ENOXAPARIN
     Indication: PRODUCT USED FOR UNKNOWN INDICATION
     Dosage: UNK
  23. MELATONIN [Concomitant]
     Active Substance: MELATONIN
     Dosage: UNK
  24. TARGIN [Concomitant]
     Active Substance: NALOXONE HYDROCHLORIDE\OXYCODONE HYDROCHLORIDE
     Dosage: UNK
  25. TADALAFIL. [Suspect]
     Active Substance: TADALAFIL
     Indication: PRODUCT USED FOR UNKNOWN INDICATION
  26. FOLIC ACID TABLET [Concomitant]
     Active Substance: FOLIC ACID
     Indication: PRODUCT USED FOR UNKNOWN INDICATION
     Dosage: UNK
  27. TADALAFIL. [Suspect]
     Active Substance: TADALAFIL
     Indication: SCLERODERMA
     Dosage: UNK
     Route: 065
  28. ATORVASTATIN TABLET [Concomitant]
     Active Substance: ATORVASTATIN
     Indication: PRODUCT USED FOR UNKNOWN INDICATION
     Dosage: UNK
  29. ENOXAPARIN INJECTION [Concomitant]
     Active Substance: ENOXAPARIN
     Dosage: UNK
  30. VELETRI [Concomitant]
     Active Substance: EPOPROSTENOL
     Indication: PRODUCT USED FOR UNKNOWN INDICATION
     Dosage: UNK

REACTIONS (8)
  - Pulmonary vascular resistance abnormality [Unknown]
  - Headache [Recovered/Resolved]
  - Hospitalisation [Unknown]
  - Dyspnoea [Recovering/Resolving]
  - Flushing [Recovered/Resolved]
  - Small intestinal obstruction [Not Recovered/Not Resolved]
  - Disease progression [Unknown]
  - Nausea [Recovered/Resolved]

NARRATIVE: CASE EVENT DATE: 202012
